FAERS Safety Report 9414705 (Version 1)
Quarter: 2013Q3

REPORT INFORMATION
  Report Type: Spontaneous
  Country: AT (occurrence: AT)
  Receive Date: 20130723
  Receipt Date: 20130723
  Transmission Date: 20140515
  Serious: Yes (Other)
  Sender: FDA-Public Use
  Company Number: PHHY2013AT077524

PATIENT
  Age: 40 Year
  Sex: Male
  Weight: 100 kg

DRUGS (1)
  1. SIMVASTATIN HEXAL [Suspect]
     Indication: HYPERCHOLESTEROLAEMIA
     Dosage: 40 MG, PER DAY
     Route: 048
     Dates: start: 20120627, end: 20130617

REACTIONS (3)
  - Local swelling [Recovering/Resolving]
  - Joint swelling [Recovering/Resolving]
  - Myalgia [Recovering/Resolving]
